FAERS Safety Report 9191111 (Version 1)
Quarter: 2013Q1

REPORT INFORMATION
  Report Type: Spontaneous
  Country: BR (occurrence: BR)
  Receive Date: 20130326
  Receipt Date: 20130326
  Transmission Date: 20140127
  Serious: Yes (Other)
  Sender: FDA-Public Use
  Company Number: PHHY2013BR010203

PATIENT
  Sex: Male

DRUGS (6)
  1. DIOVAN HCT [Suspect]
     Indication: HYPERTENSION
     Dosage: 1 DF, QD (320 MG VALS AND 12.5 MG HCTZ)
     Dates: end: 201104
  2. DIOVAN HCT [Suspect]
     Dosage: 1 DF (160/12.5MG), DAILY
     Route: 048
  3. VASTAREL [Suspect]
     Dosage: 1 DF, BID
  4. SUSTRATE [Suspect]
     Dosage: 1 DF, BID
  5. ARADOIS [Suspect]
     Dosage: 1 DF, BID
  6. HUMULIN [Concomitant]
     Indication: DIABETES MELLITUS
     Dosage: 48 IU (36 IU IN THE MORNING + 16 IU AT NIGHT), DAILY
     Route: 058

REACTIONS (3)
  - Venous occlusion [Recovered/Resolved]
  - Chest pain [Recovering/Resolving]
  - Fatigue [Recovering/Resolving]
